FAERS Safety Report 10194610 (Version 1)
Quarter: 2014Q2

REPORT INFORMATION
  Report Type: Report from Study
  Country: US (occurrence: US)
  Receive Date: 20140526
  Receipt Date: 20140526
  Transmission Date: 20141212
  Serious: Yes (Other)
  Sender: FDA-Public Use
  Company Number: US-ROCHE-1405534

PATIENT
  Sex: Female
  Weight: 27.2 kg

DRUGS (3)
  1. NUTROPIN AQ [Suspect]
     Indication: HYPOPITUITARISM
     Route: 058
  2. CORTEF [Concomitant]
     Indication: HYPOPITUITARISM
     Route: 048
  3. SYNTHROID [Concomitant]
     Indication: HYPOPITUITARISM
     Route: 048

REACTIONS (2)
  - Faecaloma [Unknown]
  - Drug dose omission [Unknown]
